FAERS Safety Report 19318539 (Version 1)
Quarter: 2021Q2

REPORT INFORMATION
  Report Type: Spontaneous
  Country: US (occurrence: US)
  Receive Date: 20210528
  Receipt Date: 20210528
  Transmission Date: 20210717
  Serious: Yes (Hospitalization)
  Sender: FDA-Public Use
  Company Number: US-MDD US OPERATIONS-SUP202105-000947

PATIENT
  Age: 15 Year
  Sex: Female

DRUGS (2)
  1. TOPIRAMATE. [Suspect]
     Active Substance: TOPIRAMATE
     Indication: MENINGITIS ASEPTIC
  2. FUROSEMIDE. [Suspect]
     Active Substance: FUROSEMIDE
     Indication: MENINGITIS ASEPTIC

REACTIONS (8)
  - Staring [Recovered/Resolved]
  - Papilloedema [Recovered/Resolved]
  - Condition aggravated [Recovered/Resolved]
  - Headache [Unknown]
  - Product use in unapproved indication [Unknown]
  - Amnesia [Unknown]
  - Somnolence [Unknown]
  - Blindness [Recovered/Resolved]
